FAERS Safety Report 20684285 (Version 4)
Quarter: 2023Q1

REPORT INFORMATION
  Report Type: Spontaneous
  Country: JP (occurrence: JP)
  Receive Date: 20220407
  Receipt Date: 20230331
  Transmission Date: 20230418
  Serious: No
  Sender: FDA-Public Use
  Company Number: JP-SANOFI-2020SA163520

PATIENT
  Age: 4 Year
  Sex: Female

DRUGS (34)
  1. SABRIL [Suspect]
     Active Substance: VIGABATRIN
     Indication: Infantile spasms
     Dosage: 1000 MG, BID
     Route: 048
     Dates: start: 20200519, end: 20201104
  2. SABRIL [Suspect]
     Active Substance: VIGABATRIN
     Dosage: UNK
     Route: 048
     Dates: start: 20170316
  3. SABRIL [Suspect]
     Active Substance: VIGABATRIN
     Dosage: 750 MG, BID
     Route: 048
     Dates: start: 20201105, end: 20210105
  4. SABRIL [Suspect]
     Active Substance: VIGABATRIN
     Dosage: 625 MG, BID
     Route: 048
     Dates: start: 20210106, end: 20210302
  5. SABRIL [Suspect]
     Active Substance: VIGABATRIN
     Dosage: 500 MG, BID
     Route: 048
     Dates: start: 20210303, end: 20210420
  6. SABRIL [Suspect]
     Active Substance: VIGABATRIN
     Dosage: 375 MG, BID
     Route: 048
     Dates: start: 20210421, end: 20210830
  7. SABRIL [Suspect]
     Active Substance: VIGABATRIN
     Dosage: 300 MG, BID
     Route: 048
     Dates: start: 20210901, end: 20210907
  8. SABRIL [Suspect]
     Active Substance: VIGABATRIN
     Dosage: 375 MG, BID
     Route: 048
     Dates: start: 20210908, end: 20211026
  9. SABRIL [Suspect]
     Active Substance: VIGABATRIN
     Dosage: 300 MG, BID
     Route: 048
     Dates: start: 20211027, end: 20211116
  10. SABRIL [Suspect]
     Active Substance: VIGABATRIN
     Dosage: 225 MG, BID
     Route: 048
     Dates: start: 20211117
  11. DEPAKENE [Concomitant]
     Active Substance: VALPROIC ACID
     Indication: Product used for unknown indication
     Dosage: 2.3 ML, BID
     Route: 048
     Dates: start: 20200519
  12. DEPAKENE [Concomitant]
     Active Substance: VALPROIC ACID
     Dosage: UNK
     Route: 048
     Dates: start: 20200611
  13. DEPAKENE [Concomitant]
     Active Substance: VALPROIC ACID
     Dosage: UNK
     Route: 048
     Dates: start: 20200622
  14. DEPAKENE [Concomitant]
     Active Substance: VALPROIC ACID
     Dosage: DAILY DOSE: 230 MG
     Route: 048
  15. LAMICTAL [Concomitant]
     Active Substance: LAMOTRIGINE
     Indication: Product used for unknown indication
     Dosage: 3 DF, BID
     Route: 048
     Dates: start: 20200519
  16. LAMICTAL [Concomitant]
     Active Substance: LAMOTRIGINE
     Dosage: UNK
     Route: 048
     Dates: start: 20200611
  17. LAMICTAL [Concomitant]
     Active Substance: LAMOTRIGINE
     Dosage: UNK, BID
     Route: 048
     Dates: start: 20200622
  18. LAMICTAL [Concomitant]
     Active Substance: LAMOTRIGINE
     Dosage: DAILY DOSE: 150 MG
     Route: 048
  19. LEVOCARNITINE [Concomitant]
     Active Substance: LEVOCARNITINE
     Indication: Product used for unknown indication
     Dosage: 2 ML, BID
     Route: 048
     Dates: start: 20200519
  20. LEVOCARNITINE [Concomitant]
     Active Substance: LEVOCARNITINE
     Dosage: UNK
     Route: 048
     Dates: start: 20200611
  21. LEVOCARNITINE [Concomitant]
     Active Substance: LEVOCARNITINE
     Dosage: UNK
     Route: 048
     Dates: start: 20200622
  22. LEVOCARNITINE [Concomitant]
     Active Substance: LEVOCARNITINE
     Dosage: DAILY DOSE: 4 ML
     Route: 048
  23. VIMPAT [Concomitant]
     Active Substance: LACOSAMIDE
     Indication: Infantile spasms
     Dosage: 40 MG, BID
     Route: 048
     Dates: start: 20200519
  24. VIMPAT [Concomitant]
     Active Substance: LACOSAMIDE
     Dosage: UNK
     Route: 048
     Dates: start: 20200611
  25. VIMPAT [Concomitant]
     Active Substance: LACOSAMIDE
     Dosage: UNK
     Route: 048
     Dates: start: 20200622
  26. VIMPAT [Concomitant]
     Active Substance: LACOSAMIDE
     Dosage: DAILY DOSE: 80 MG
     Route: 048
     Dates: start: 20210519, end: 20220120
  27. VIMPAT [Concomitant]
     Active Substance: LACOSAMIDE
     Dosage: DAILY DOSE: 60 MG
     Route: 048
     Dates: start: 20220121, end: 20220303
  28. VIMPAT [Concomitant]
     Active Substance: LACOSAMIDE
     Dosage: DAILY DOSE: 40 MG
     Route: 048
     Dates: start: 20220304, end: 20220405
  29. VIMPAT [Concomitant]
     Active Substance: LACOSAMIDE
     Dosage: DAILY DOSE: 20 MG
     Route: 048
     Dates: start: 20220406, end: 20220510
  30. GLYCOSAMINOGLYCANS [Concomitant]
     Active Substance: GLYCOSAMINOGLYCANS
     Indication: Product used for unknown indication
     Dosage: UNK, TID
     Route: 065
     Dates: start: 20200519
  31. GLYCOSAMINOGLYCANS [Concomitant]
     Active Substance: GLYCOSAMINOGLYCANS
     Dosage: UNK
     Route: 065
     Dates: start: 20200622
  32. MOTOCOL [Concomitant]
     Indication: Product used for unknown indication
     Dosage: 1 SACHET, AFTER BREAKFAST
     Route: 065
     Dates: start: 20200519
  33. MOTOCOL [Concomitant]
     Dosage: UNK
     Route: 065
     Dates: start: 20200611
  34. MOTOCOL [Concomitant]
     Dosage: UNK
     Route: 065
     Dates: start: 20200622

REACTIONS (1)
  - No adverse event [Unknown]
